FAERS Safety Report 8213168-6 (Version None)
Quarter: 2012Q1

REPORT INFORMATION
  Report Type: 
  Country: None (occurrence: None)
  Receive Date: 20120315
  Receipt Date: 20120305
  Transmission Date: 20120608
  Serious: Yes (Other)
  Sender: FDA-Public Use
  Company Number: FR-PFIZER INC-2012059090

PATIENT
  Age: 38 Year
  Sex: Male

DRUGS (2)
  1. CYTARABINE [Suspect]
     Indication: ACUTE LEUKAEMIA
     Dosage: 1830 MG, 2X/DAY
     Route: 042
     Dates: start: 20110913, end: 20110917
  2. MITOXANTRONE [Suspect]
     Indication: ACUTE LEUKAEMIA
     Dosage: 20 MG, 1X/DAY
     Route: 042
     Dates: start: 20110913, end: 20110914

REACTIONS (3)
  - BONE MARROW FAILURE [None]
  - STREPTOCOCCAL SEPSIS [None]
  - UVEITIS [None]
